FAERS Safety Report 5448774-5 (Version None)
Quarter: 2007Q3

REPORT INFORMATION
  Report Type: 
  Country: None (occurrence: None)
  Receive Date: 20070911
  Receipt Date: 20070604
  Transmission Date: 20080115
  Serious: Yes (Hospitalization)
  Sender: FDA-Public Use
  Company Number: US-BRISTOL-MYERS SQUIBB COMPANY-13801568

PATIENT
  Age: 87 Year
  Sex: Female
  Weight: 54 kg

DRUGS (5)
  1. EMSAM [Suspect]
     Dosage: DOSE INCREASED TO 9 MG WHILE HOSP. IN MAY-07
     Route: 062
     Dates: start: 20070511
  2. ASPIRIN [Concomitant]
  3. MULTI-VITAMIN [Concomitant]
  4. CALCIUM [Concomitant]
  5. SYNTHROID [Concomitant]

REACTIONS (6)
  - AGGRESSION [None]
  - ANXIETY [None]
  - CRYING [None]
  - HOSTILITY [None]
  - PERSONALITY CHANGE [None]
  - RESTLESSNESS [None]
